FAERS Safety Report 6877494-5 (Version None)
Quarter: 2010Q3

REPORT INFORMATION
  Report Type: 
  Country: None (occurrence: None)
  Receive Date: 20100727
  Receipt Date: 20091116
  Transmission Date: 20110219
  Serious: No
  Sender: FDA-Public Use
  Company Number: US-ABBOTT-09P-163-0609403-00

PATIENT
  Sex: Male

DRUGS (1)
  1. SYNTHROID [Suspect]
     Indication: HYPOTHYROIDISM
     Dates: start: 20020101

REACTIONS (5)
  - COELIAC DISEASE [None]
  - DIARRHOEA [None]
  - EAR INFECTION [None]
  - IRRITABLE BOWEL SYNDROME [None]
  - SINUSITIS [None]
